FAERS Safety Report 9519559 (Version 1)
Quarter: 2013Q1

REPORT INFORMATION
  Report Type: Spontaneous
  Country: US (occurrence: None)
  Receive Date: 20130305
  Receipt Date: 20130305
  Transmission Date: 20140127
  Serious: Yes (Other)
  Sender: FDA-Public Use
  Company Number: 163-21880-11121066

PATIENT
  Age: 79 Year
  Sex: Female
  Weight: 44.45 kg

DRUGS (7)
  1. REVLIMID [Suspect]
     Indication: PLASMA CELL LEUKAEMIA
     Dosage: 15 MG, 1 IN 1 D, PO
     Route: 048
     Dates: start: 201110
  2. MELPHALAN [Suspect]
     Indication: PRODUCT USED FOR UNKNOWN INDICATION
     Dosage: 8 MG, UNK
     Dates: start: 2011, end: 20111201
  3. PREDNISONE (PREDNISONE) (UNKNOWN) [Concomitant]
  4. ZOMETA (ZOLEDRONIC ACID) (UNKNOWN) [Concomitant]
  5. MORPHINE (MORPHINE) (UNKNOWN) (MORPHINE) [Concomitant]
  6. VICODIN (VICODIN) (UNKNOWN) [Concomitant]
  7. XANAX (ALPRAZOLAM) (UNKNOWN) [Concomitant]

REACTIONS (2)
  - Pancytopenia [None]
  - Abdominal discomfort [None]
